FAERS Safety Report 11693250 (Version 1)
Quarter: 2015Q4

REPORT INFORMATION
  Report Type: Spontaneous
  Country: US (occurrence: US)
  Receive Date: 20151103
  Receipt Date: 20151103
  Transmission Date: 20160304
  Serious: Yes (Other)
  Sender: FDA-Public Use
  Company Number: US-PFIZER INC-2015360095

PATIENT
  Age: 51 Year
  Sex: Female
  Weight: 113 kg

DRUGS (2)
  1. GABAPENTIN. [Suspect]
     Active Substance: GABAPENTIN
     Indication: NEURALGIA
     Dosage: 800MG TABLET THREE TIMES A DAY
     Route: 048
  2. GABAPENTIN. [Suspect]
     Active Substance: GABAPENTIN
     Indication: NEURALGIA
     Dosage: 100MG CAPSULE THREE TIMES A DAY
     Route: 048

REACTIONS (5)
  - Amnesia [Unknown]
  - Drug ineffective [Not Recovered/Not Resolved]
  - Diabetes mellitus [Unknown]
  - Spinal pain [Not Recovered/Not Resolved]
  - Dysstasia [Unknown]

NARRATIVE: CASE EVENT DATE: 2011
